FAERS Safety Report 6602569-5 (Version None)
Quarter: 2010Q1

REPORT INFORMATION
  Report Type: 
  Country: None (occurrence: None)
  Receive Date: 20100217
  Receipt Date: 20100203
  Transmission Date: 20100710
  Serious: Yes (Other)
  Sender: FDA-Public Use
  Company Number: 231159J10USA

PATIENT
  Age: 48 Year
  Sex: Male

DRUGS (1)
  1. REBIF [Suspect]
     Indication: MULTIPLE SCLEROSIS
     Dosage: 44 MCG, 3 IN 1 SUBCUTANEOUS
     Route: 058
     Dates: start: 20090930, end: 20100201

REACTIONS (1)
  - APPENDIX DISORDER [None]
